FAERS Safety Report 20956033 (Version 3)
Quarter: 2023Q2

REPORT INFORMATION
  Report Type: Spontaneous
  Country: US (occurrence: None)
  Receive Date: 20220614
  Receipt Date: 20230614
  Transmission Date: 20230722
  Serious: No
  Sender: FDA-Public Use
  Company Number: US-MDD US Operations-MDD202201-000124

PATIENT
  Age: 70 Year
  Sex: Female

DRUGS (34)
  1. APOKYN [Suspect]
     Active Substance: APOMORPHINE HYDROCHLORIDE
     Indication: Parkinson^s disease
     Route: 058
     Dates: start: 202201
  2. APOKYN [Suspect]
     Active Substance: APOMORPHINE HYDROCHLORIDE
     Dosage: NOT PROVIDED
     Route: 058
  3. APOKYN [Suspect]
     Active Substance: APOMORPHINE HYDROCHLORIDE
  4. APOKYN [Suspect]
     Active Substance: APOMORPHINE HYDROCHLORIDE
  5. ONGENTYS [Suspect]
     Active Substance: OPICAPONE
     Indication: Product used for unknown indication
     Dosage: NOT PROVIDED
  6. GABAPENTIN [Suspect]
     Active Substance: GABAPENTIN
     Dosage: NOT PROVIDED
  7. RYTARY [Concomitant]
     Active Substance: CARBIDOPA\LEVODOPA
  8. RYTARY [Concomitant]
     Active Substance: CARBIDOPA\LEVODOPA
  9. RYTARY [Concomitant]
     Active Substance: CARBIDOPA\LEVODOPA
  10. RYTARY [Concomitant]
     Active Substance: CARBIDOPA\LEVODOPA
  11. RYTARY [Concomitant]
     Active Substance: CARBIDOPA\LEVODOPA
  12. NEUPRO [Concomitant]
     Active Substance: ROTIGOTINE
  13. NOURIANZ [Concomitant]
     Active Substance: ISTRADEFYLLINE
     Indication: Parkinson^s disease
  14. DONEPEZIL [Concomitant]
     Active Substance: DONEPEZIL
  15. MEMANTINE [Concomitant]
     Active Substance: MEMANTINE
     Indication: Parkinson^s disease
  16. DOMPERIDONE [Concomitant]
     Active Substance: DOMPERIDONE
     Indication: Nausea
  17. HYDROXYZINE HYDROCHLORIDE [Concomitant]
     Active Substance: HYDROXYZINE HYDROCHLORIDE
     Dosage: NOT PROVIDED
  18. AZELASTINE [Concomitant]
     Active Substance: AZELASTINE
     Dosage: NOT PROVIDED
  19. Prilosac [Concomitant]
  20. MYRBETRIQ [Concomitant]
     Active Substance: MIRABEGRON
  21. CRESTOR [Concomitant]
     Active Substance: ROSUVASTATIN CALCIUM
     Dosage: NOT PROVIDED
  22. IPRATROPIUM BROMIDE [Concomitant]
     Active Substance: IPRATROPIUM BROMIDE\IPRATROPIUM BROMIDE ANHYDROUS
     Dosage: NOT PROVIDED
  23. PROLIA [Concomitant]
     Active Substance: DENOSUMAB
     Dosage: NOT PROVIDED
  24. Colate [Concomitant]
     Dosage: NOT PROVIDED
  25. TYLENOL [Concomitant]
     Active Substance: ACETAMINOPHEN
     Dosage: NOT PROVIDED
  26. CHONDROITIN SULFATE (BOVINE)\GLUCOSAMINE HYDROCHLORIDE [Concomitant]
     Active Substance: CHONDROITIN SULFATE (BOVINE)\GLUCOSAMINE HYDROCHLORIDE
  27. FISH OIL [Concomitant]
     Active Substance: FISH OIL
  28. VITAMIN C [Concomitant]
     Active Substance: ASCORBIC ACID
     Dosage: NOT PROVIDED
  29. VITAMIN D3 [Concomitant]
     Active Substance: CHOLECALCIFEROL
     Dosage: NOT PROVIDED
  30. VITAMIN B12 [Concomitant]
     Active Substance: CYANOCOBALAMIN
     Dosage: NOT PROVIDED
  31. CALCIUM [Concomitant]
     Active Substance: CALCIUM
     Dosage: NOT PROVIDED
  32. MAGNESIUM [Concomitant]
     Active Substance: MAGNESIUM
     Dosage: NOT PROVIDED
  33. CHLORIDE ION [Concomitant]
     Active Substance: CHLORIDE ION
     Dosage: NOT PROVIDED
  34. D-MANNOSE [Concomitant]
     Dosage: NOT PROVIDED

REACTIONS (15)
  - Blood pressure increased [Not Recovered/Not Resolved]
  - Feeling hot [Recovered/Resolved]
  - Pallor [Recovered/Resolved]
  - Infrequent bowel movements [Recovered/Resolved]
  - Abnormal dreams [Recovering/Resolving]
  - Blood pressure decreased [Recovered/Resolved]
  - Dyskinesia [Recovered/Resolved]
  - Headache [Recovered/Resolved]
  - Hallucination [Not Recovered/Not Resolved]
  - Injection site pain [Recovering/Resolving]
  - Injection site bruising [Unknown]
  - Confusional state [Not Recovered/Not Resolved]
  - Headache [Not Recovered/Not Resolved]
  - Device issue [Unknown]
  - Therapeutic product effect variable [Unknown]

NARRATIVE: CASE EVENT DATE: 20220128
